FAERS Safety Report 10633429 (Version 1)
Quarter: 2014Q4

REPORT INFORMATION
  Report Type: Spontaneous
  Country: US (occurrence: None)
  Receive Date: 20141203
  Receipt Date: 20141203
  Transmission Date: 20150529
  Serious: Yes (Death)
  Sender: FDA-Public Use
  Company Number: 2014SA161948

PATIENT
  Age: 14 Year
  Sex: Male

DRUGS (4)
  1. ACETAMINOPHEN. [Suspect]
     Active Substance: ACETAMINOPHEN
     Indication: COMPLETED SUICIDE
     Dosage: U
  2. DIPHENHYDRAMINE [Suspect]
     Active Substance: DIPHENHYDRAMINE
     Indication: COMPLETED SUICIDE
     Dosage: U
  3. FLUVOXAMINE [Suspect]
     Active Substance: FLUVOXAMINE
     Indication: COMPLETED SUICIDE
  4. QUETIAPINE FUMARATE. [Suspect]
     Active Substance: QUETIAPINE FUMARATE
     Indication: COMPLETED SUICIDE
     Dosage: U

REACTIONS (2)
  - Intentional overdose [None]
  - Completed suicide [None]

NARRATIVE: CASE EVENT DATE: 2003
